FAERS Safety Report 14125868 (Version 1)
Quarter: 2017Q4

REPORT INFORMATION
  Report Type: Spontaneous
  Country: US (occurrence: US)
  Receive Date: 20171025
  Receipt Date: 20171025
  Transmission Date: 20180321
  Serious: Yes (Other)
  Sender: FDA-Public Use
  Company Number: US-BAYER-2017-201345

PATIENT
  Age: 39 Year
  Sex: Female

DRUGS (18)
  1. CIPRO [Suspect]
     Active Substance: CIPROFLOXACIN HYDROCHLORIDE
     Indication: URINARY TRACT INFECTION
     Dosage: 500 MG, UNK
     Dates: start: 20130107, end: 20130114
  2. CIPRO [Suspect]
     Active Substance: CIPROFLOXACIN HYDROCHLORIDE
     Indication: ENDODONTIC PROCEDURE
     Dosage: 500 MG, UNK
     Dates: start: 20140221, end: 20140303
  3. LEVOFLOXACIN. [Suspect]
     Active Substance: LEVOFLOXACIN
     Indication: SINUS OPERATION
     Dosage: 500 MG,7 PILLS
     Dates: start: 20110915, end: 20110921
  4. LEVOFLOXACIN. [Suspect]
     Active Substance: LEVOFLOXACIN
     Indication: SINUS OPERATION
     Dosage: 2500 MG, UNK
     Dates: start: 20130410, end: 20130412
  5. LEVAQUIN [Suspect]
     Active Substance: LEVOFLOXACIN
     Indication: ANTIBIOTIC THERAPY
     Dosage: UNK
     Route: 042
     Dates: start: 20130227
  6. CIPRO [Suspect]
     Active Substance: CIPROFLOXACIN HYDROCHLORIDE
     Indication: ENDODONTIC PROCEDURE
     Dosage: 500 MG, UNK
     Dates: start: 20120705
  7. LEVAQUIN [Suspect]
     Active Substance: LEVOFLOXACIN
     Indication: ANTIBIOTIC THERAPY
     Dosage: 500 MG, UNK
     Route: 042
     Dates: start: 20130411
  8. IBUPROFEN. [Concomitant]
     Active Substance: IBUPROFEN
     Dosage: UNK
     Dates: start: 2013
  9. FLOXACIN [Concomitant]
     Active Substance: NORFLOXACIN
     Indication: TYMPANOPLASTY
     Dosage: 500 MG, UNK
     Route: 042
     Dates: start: 20150813
  10. LEVOFLOXACIN. [Suspect]
     Active Substance: LEVOFLOXACIN
     Indication: SINUS OPERATION
     Dosage: 500 MG, UNK
     Dates: start: 20141103, end: 20141107
  11. LEVOFLOXACIN. [Suspect]
     Active Substance: LEVOFLOXACIN
     Indication: SINUS OPERATION
     Dosage: 500 MG, UNK
     Dates: start: 20150909, end: 20150914
  12. CIPRO [Suspect]
     Active Substance: CIPROFLOXACIN HYDROCHLORIDE
     Indication: ENDODONTIC PROCEDURE
     Dosage: 500 MG, UNK
     Dates: start: 20120725, end: 20120801
  13. LEVOFLOXACIN. [Suspect]
     Active Substance: LEVOFLOXACIN
     Indication: FOOT OPERATION
     Dosage: 500 MG, 5 PILLS
     Dates: start: 20120919, end: 20140924
  14. LEVOFLOXACIN. [Suspect]
     Active Substance: LEVOFLOXACIN
     Indication: SKIN COSMETIC PROCEDURE
     Dosage: 500 MG, UNK
     Dates: start: 20130220, end: 20130221
  15. LEVAQUIN [Suspect]
     Active Substance: LEVOFLOXACIN
     Indication: ANTIBIOTIC THERAPY
     Dosage: 100 ML, UNK
     Dates: start: 20140206
  16. CIPRO [Suspect]
     Active Substance: CIPROFLOXACIN HYDROCHLORIDE
     Indication: SINUSITIS
     Dosage: 500 MG, UNK
     Dates: start: 20130910, end: 20130917
  17. NITROFURANTOIN. [Concomitant]
     Active Substance: NITROFURANTOIN
     Indication: URINARY TRACT INFECTION
     Dosage: UNK
     Dates: start: 20130423
  18. ATORVASTATIN [Concomitant]
     Active Substance: ATORVASTATIN
     Indication: BLOOD CHOLESTEROL INCREASED
     Dosage: UNK
     Dates: start: 2014

REACTIONS (4)
  - Neuropathy peripheral [Not Recovered/Not Resolved]
  - Injury [Not Recovered/Not Resolved]
  - Brachial plexopathy [Not Recovered/Not Resolved]
  - Pain [Not Recovered/Not Resolved]

NARRATIVE: CASE EVENT DATE: 201303
